FAERS Safety Report 19845727 (Version 4)
Quarter: 2021Q4

REPORT INFORMATION
  Report Type: Spontaneous
  Country: US (occurrence: US)
  Receive Date: 20210916
  Receipt Date: 20211202
  Transmission Date: 20220303
  Serious: Yes (Hospitalization, Other)
  Sender: FDA-Public Use
  Company Number: US-MALLINCKRODT PHARMACEUTICALS-T202104037

PATIENT
  Sex: Female

DRUGS (2)
  1. H.P. ACTHAR [Suspect]
     Active Substance: CORTICOTROPIN
     Indication: Iridocyclitis
     Dosage: 80 UNITS/ 1 MILLILITER, WEEKLY (ONCE EVERY WEEK)
     Route: 030
     Dates: start: 202106, end: 2021
  2. H.P. ACTHAR [Suspect]
     Active Substance: CORTICOTROPIN
     Dosage: 80 UNITS/ 1 MILLILITER, WEEKLY (ONCE EVERY WEEK)
     Route: 030
     Dates: start: 2021

REACTIONS (8)
  - Oesophageal dilatation [Unknown]
  - Eyelid operation [Unknown]
  - Eyelid disorder [Unknown]
  - Biopsy [Unknown]
  - Pneumonia [Not Recovered/Not Resolved]
  - Arthritis [Not Recovered/Not Resolved]
  - Heart rate increased [Unknown]
  - Blood pressure increased [Unknown]

NARRATIVE: CASE EVENT DATE: 20210101
